FAERS Safety Report 17403155 (Version 1)
Quarter: 2020Q1

REPORT INFORMATION
  Report Type: Spontaneous
  Country: GB (occurrence: GB)
  Receive Date: 20200211
  Receipt Date: 20200211
  Transmission Date: 20200409
  Serious: Yes (Other)
  Sender: FDA-Public Use
  Company Number: GB-ARRAY-2020-07285

PATIENT

DRUGS (1)
  1. BRAFTOVI [Suspect]
     Active Substance: ENCORAFENIB
     Indication: COLORECTAL CANCER METASTATIC
     Dosage: 75 MG, UNKNOWN
     Route: 065

REACTIONS (2)
  - Intestinal obstruction [Recovered/Resolved]
  - Product use in unapproved indication [Unknown]
